FAERS Safety Report 15103605 (Version 2)
Quarter: 2019Q1

REPORT INFORMATION
  Report Type: Spontaneous
  Country: KR (occurrence: KR)
  Receive Date: 20180703
  Receipt Date: 20190319
  Transmission Date: 20190417
  Serious: Yes (Death)
  Sender: FDA-Public Use
  Company Number: KR-ASTRAZENECA-2018SE83510

PATIENT
  Sex: Female

DRUGS (3)
  1. BENZYDAMINE [Concomitant]
     Active Substance: BENZYDAMINE
     Dosage: 100ML/BTL, 3BT/1 TIME, TOTAL 3
  2. FASLODEX [Suspect]
     Active Substance: FULVESTRANT
     Indication: BREAST CANCER
     Route: 030
     Dates: start: 20180530
  3. IBRANCE [Suspect]
     Active Substance: PALBOCICLIB
     Indication: BREAST CANCER
     Dosage: 125 MG DAILY, 1C/1 TIME, ONCE DAILY, 21 DAYS, TOTAL 21
     Route: 048
     Dates: start: 20180530

REACTIONS (1)
  - Death [Fatal]
